FAERS Safety Report 4350596-3 (Version None)
Quarter: 2004Q2

REPORT INFORMATION
  Report Type: 
  Country: None (occurrence: None)
  Receive Date: 20040427
  Receipt Date: 20040420
  Transmission Date: 20050107
  Serious: Yes (Other)
  Sender: FDA-Public Use
  Company Number: 430009M04USA

PATIENT
  Age: 77 Year
  Sex: Male

DRUGS (1)
  1. NOVANTRONE [Suspect]
     Indication: MULTIPLE SCLEROSIS
     Dosage: 0.8 MG/ML, 1 IN 1 DAYS, CONJUNCTIVAL
     Dates: start: 20040415, end: 20040415

REACTIONS (4)
  - CORNEAL EPITHELIUM DEFECT [None]
  - CORNEAL STAINING [None]
  - DRUG TOXICITY [None]
  - MEDICATION ERROR [None]
